FAERS Safety Report 16652808 (Version 2)
Quarter: 2020Q2

REPORT INFORMATION
  Report Type: Spontaneous
  Country: FR (occurrence: FR)
  Receive Date: 20190731
  Receipt Date: 20200422
  Transmission Date: 20200713
  Serious: Yes (Life-Threatening)
  Sender: FDA-Public Use
  Company Number: FR-BAUSCH-BL-2019-021480

PATIENT
  Age: 72 Year
  Sex: Male
  Weight: 102.5 kg

DRUGS (3)
  1. METFORMINE [Suspect]
     Active Substance: METFORMIN HYDROCHLORIDE
     Indication: TYPE 2 DIABETES MELLITUS
     Route: 048
  2. KETOPROFENE [Concomitant]
     Active Substance: KETOPROFEN
     Indication: BACK PAIN
     Route: 030
     Dates: start: 20190626, end: 20190629
  3. CANDESARTAN CILEXETIL. [Concomitant]
     Active Substance: CANDESARTAN CILEXETIL
     Indication: HYPERTENSION
     Route: 048

REACTIONS (4)
  - Back pain [Recovered/Resolved]
  - Lactic acidosis [Recovered/Resolved]
  - Vomiting [Recovered/Resolved]
  - Diarrhoea [Recovered/Resolved]

NARRATIVE: CASE EVENT DATE: 20190612
